FAERS Safety Report 5572230-7 (Version None)
Quarter: 2007Q4

REPORT INFORMATION
  Report Type: 
  Country: None (occurrence: None)
  Receive Date: 20071221
  Receipt Date: 20071209
  Transmission Date: 20080405
  Serious: Yes (Other)
  Sender: FDA-Public Use
  Company Number: US-PFIZER INC-2007104395

PATIENT
  Sex: Female
  Weight: 46.363 kg

DRUGS (3)
  1. DILANTIN [Suspect]
     Indication: CONVULSION
  2. PHENOBARBITAL TAB [Concomitant]
  3. LIPITOR [Concomitant]

REACTIONS (1)
  - ANTICONVULSANT DRUG LEVEL INCREASED [None]
